FAERS Safety Report 12287604 (Version 2)
Quarter: 2016Q2

REPORT INFORMATION
  Report Type: Spontaneous
  Country: FR (occurrence: FR)
  Receive Date: 20160420
  Receipt Date: 20160512
  Transmission Date: 20160815
  Serious: Yes (Hospitalization, Other)
  Sender: FDA-Public Use
  Company Number: FR-GILEAD-2016-0208893

PATIENT
  Age: 60 Year
  Sex: Male
  Weight: 43 kg

DRUGS (7)
  1. LAMIVUDINE. [Concomitant]
     Active Substance: LAMIVUDINE
  2. HARVONI [Concomitant]
     Active Substance: LEDIPASVIR\SOFOSBUVIR
  3. TRUVADA [Suspect]
     Active Substance: EMTRICITABINE\TENOFOVIR DISOPROXIL FUMARATE
     Indication: HEPATITIS B
     Dosage: 1 DF, EVERY TWO DAYS
     Route: 065
  4. ISENTRESS [Concomitant]
     Active Substance: RALTEGRAVIR POTASSIUM
  5. EPIVIR [Concomitant]
     Active Substance: LAMIVUDINE
  6. TRUVADA [Suspect]
     Active Substance: EMTRICITABINE\TENOFOVIR DISOPROXIL FUMARATE
     Indication: HIV INFECTION
     Dosage: 1 DF, QD
     Route: 065
  7. NORVIR [Concomitant]
     Active Substance: RITONAVIR

REACTIONS (8)
  - Renal tubular disorder [Unknown]
  - Renal cancer [Unknown]
  - Renal failure [Unknown]
  - Nephrectomy [Unknown]
  - Nephropathy [Unknown]
  - Renal impairment [Unknown]
  - Glomerulonephritis [Unknown]
  - Fanconi syndrome acquired [Unknown]

NARRATIVE: CASE EVENT DATE: 201601
